FAERS Safety Report 14608627 (Version 1)
Quarter: 2018Q1

REPORT INFORMATION
  Report Type: Spontaneous
  Country: US (occurrence: US)
  Receive Date: 20180306
  Receipt Date: 20180306
  Transmission Date: 20180509
  Serious: Yes (Life-Threatening, Other)
  Sender: FDA-Public Use
  Company Number: None

PATIENT
  Age: 24 Year
  Sex: Female
  Weight: 92.5 kg

DRUGS (1)
  1. OMALIZUMAB. [Suspect]
     Active Substance: OMALIZUMAB
     Indication: ASTHMA
     Dosage: ?          OTHER FREQUENCY:ONCE;?
     Route: 058
     Dates: start: 20171017, end: 20171017

REACTIONS (5)
  - Throat irritation [None]
  - Pruritus [None]
  - Dyspnoea [None]
  - Pharyngeal oedema [None]
  - Heart rate increased [None]

NARRATIVE: CASE EVENT DATE: 20171017
